FAERS Safety Report 4581856-9 (Version None)
Quarter: 2005Q1

REPORT INFORMATION
  Report Type: 
  Country: None (occurrence: None)
  Receive Date: 20050214
  Receipt Date: 20040323
  Transmission Date: 20050727
  Serious: No
  Sender: FDA-Public Use
  Company Number: US-GLAXOSMITHKLINE-A0504104A

PATIENT
  Sex: Female

DRUGS (3)
  1. LAMICTAL [Suspect]
     Indication: ILL-DEFINED DISORDER
     Dosage: 225MG PER DAY
     Route: 048
     Dates: start: 20031001
  2. WELLBUTRIN [Suspect]
     Indication: ILL-DEFINED DISORDER
     Dosage: 200MG PER DAY
     Route: 048
  3. TRAZODONE [Concomitant]

REACTIONS (5)
  - COUGH [None]
  - DRY EYE [None]
  - INFLUENZA [None]
  - MUSCLE TWITCHING [None]
  - PHOTOSENSITIVITY REACTION [None]
